FAERS Safety Report 8241385-8 (Version None)
Quarter: 2012Q1

REPORT INFORMATION
  Report Type: 
  Country: None (occurrence: None)
  Receive Date: 20120328
  Receipt Date: 20120321
  Transmission Date: 20120608
  Serious: Yes (Hospitalization, Other)
  Sender: FDA-Public Use
  Company Number: PHHY2012ES025352

PATIENT
  Sex: Female

DRUGS (2)
  1. PYRAZINAMIDE [Suspect]
     Indication: BONE TUBERCULOSIS
     Route: 048
     Dates: start: 20111205, end: 20111226
  2. CLOXACILLIN SODIUM [Concomitant]
     Indication: STAPHYLOCOCCAL INFECTION
     Dosage: 12 G, PER DAY
     Route: 048
     Dates: start: 20111213, end: 20111227

REACTIONS (22)
  - TACHYCARDIA [None]
  - STAPHYLOCOCCAL INFECTION [None]
  - PYREXIA [None]
  - RASH [None]
  - CHOLESTASIS [None]
  - TOXIC ENCEPHALOPATHY [None]
  - ASTERIXIS [None]
  - OROPHARYNGEAL PAIN [None]
  - PRURITUS [None]
  - BLOOD CREATININE INCREASED [None]
  - ALTERED STATE OF CONSCIOUSNESS [None]
  - MULTI-ORGAN FAILURE [None]
  - PAIN [None]
  - HEPATIC FUNCTION ABNORMAL [None]
  - RESPIRATORY FAILURE [None]
  - STENOTROPHOMONAS INFECTION [None]
  - HAEMODYNAMIC INSTABILITY [None]
  - ANURIA [None]
  - CHEST PAIN [None]
  - OXYGEN SATURATION ABNORMAL [None]
  - HYPOTENSION [None]
  - RENAL FAILURE [None]
